FAERS Safety Report 6884586-3 (Version None)
Quarter: 2010Q3

REPORT INFORMATION
  Report Type: 
  Country: None (occurrence: None)
  Receive Date: 20100729
  Receipt Date: 20070712
  Transmission Date: 20110219
  Serious: Yes (Hospitalization)
  Sender: FDA-Public Use
  Company Number: US-PFIZER INC-2007058403

PATIENT
  Sex: Female
  Weight: 63.5 kg

DRUGS (5)
  1. CELEBREX [Suspect]
     Dosage: ONCE OR TWICE DAILY
     Dates: end: 20041201
  2. ADVIL LIQUI-GELS [Concomitant]
  3. ACETAMINOPHEN [Concomitant]
  4. VIOXX [Concomitant]
  5. ASPIRIN [Concomitant]

REACTIONS (2)
  - CEREBROVASCULAR ACCIDENT [None]
  - PAIN [None]
